FAERS Safety Report 19478602 (Version 1)
Quarter: 2021Q2

REPORT INFORMATION
  Report Type: Spontaneous
  Country: CA (occurrence: CA)
  Receive Date: 20210630
  Receipt Date: 20210630
  Transmission Date: 20210717
  Serious: Yes (Other)
  Sender: FDA-Public Use
  Company Number: CA-BAUSCH-BL-2021-022072

PATIENT
  Sex: Male

DRUGS (1)
  1. ACYCLOVIR SODIUM INJECTION [Suspect]
     Active Substance: ACYCLOVIR SODIUM
     Indication: PRODUCT USED FOR UNKNOWN INDICATION
     Dosage: SOLUTION FOR INTRAVENOUS
     Route: 065

REACTIONS (2)
  - Anaphylactic shock [Recovered/Resolved]
  - Anaphylactic reaction [Recovered/Resolved]
